FAERS Safety Report 6974344-3 (Version None)
Quarter: 2010Q3

REPORT INFORMATION
  Report Type: 
  Country: None (occurrence: None)
  Receive Date: 20100909
  Receipt Date: 20100827
  Transmission Date: 20110219
  Serious: Yes (Other)
  Sender: FDA-Public Use
  Company Number: DE-GENENTECH-306097

PATIENT
  Sex: Female

DRUGS (2)
  1. XOLAIR [Suspect]
     Indication: ASTHMA
     Dosage: 150 MG, 1/MONTH
     Route: 015
     Dates: start: 20081030, end: 20100804
  2. XOLAIR [Suspect]
     Dosage: 300 MG, UNK
     Dates: start: 20100804, end: 20100804

REACTIONS (7)
  - BLOOD IMMUNOGLOBULIN E INCREASED [None]
  - CHOKING [None]
  - DRUG INEFFECTIVE [None]
  - DYSPNOEA [None]
  - HYPERSENSITIVITY [None]
  - RASH GENERALISED [None]
  - UPPER AIRWAY OBSTRUCTION [None]
